FAERS Safety Report 25659475 (Version 1)
Quarter: 2025Q3

REPORT INFORMATION
  Report Type: Spontaneous
  Country: US (occurrence: US)
  Receive Date: 20250808
  Receipt Date: 20250808
  Transmission Date: 20251021
  Serious: Yes (Other)
  Sender: GE HEALTHCARE
  Company Number: US-GE HEALTHCARE-2025CSU010473

PATIENT
  Age: 72 Year
  Sex: Female
  Weight: 100 kg

DRUGS (14)
  1. VIZAMYL [Suspect]
     Active Substance: FLUTEMETAMOL F-18
     Indication: Diagnostic procedure
     Route: 042
     Dates: start: 20250801
  2. LEVOTHYROXINE [Concomitant]
     Active Substance: LEVOTHYROXINE
  3. BACLOFEN [Concomitant]
     Active Substance: BACLOFEN
  4. QVAR [Concomitant]
     Active Substance: BECLOMETHASONE DIPROPIONATE
  5. ARIPIPRAZOLE [Concomitant]
     Active Substance: ARIPIPRAZOLE
  6. OMEPRAZOLE [Concomitant]
     Active Substance: OMEPRAZOLE
  7. LOSARTAN [Concomitant]
     Active Substance: LOSARTAN
  8. METFORMIN [Concomitant]
     Active Substance: METFORMIN HYDROCHLORIDE
  9. DOXYCYCLINE [Concomitant]
     Active Substance: DOXYCYCLINE
  10. DULOXETINE [Concomitant]
     Active Substance: DULOXETINE
  11. ATORVASTATIN [Concomitant]
     Active Substance: ATORVASTATIN
  12. LEVOMEFOLIC ACID [Concomitant]
     Active Substance: LEVOMEFOLIC ACID
  13. ALPRAZOLAM [Concomitant]
     Active Substance: ALPRAZOLAM
  14. CLOTRIMAZOLE [Concomitant]
     Active Substance: CLOTRIMAZOLE

REACTIONS (4)
  - Cough [Recovered/Resolved]
  - Dyspnoea [Recovered/Resolved]
  - Flushing [Recovered/Resolved]
  - Headache [Recovered/Resolved]

NARRATIVE: CASE EVENT DATE: 20250801
